FAERS Safety Report 6058237-4 (Version None)
Quarter: 2009Q1

REPORT INFORMATION
  Report Type: 
  Country: None (occurrence: None)
  Receive Date: 20090130
  Receipt Date: 20090120
  Transmission Date: 20090719
  Serious: Yes (Death, Hospitalization)
  Sender: FDA-Public Use
  Company Number: FR-PFIZER INC-2009154233

PATIENT

DRUGS (1)
  1. SOMATROPIN [Suspect]
     Indication: HYPOPITUITARISM
     Dosage: UNK
     Dates: start: 19961020, end: 20080528

REACTIONS (2)
  - BRAIN NEOPLASM MALIGNANT [None]
  - SEPSIS [None]
